FAERS Safety Report 7911634-1 (Version None)
Quarter: 2011Q4

REPORT INFORMATION
  Report Type: 
  Country: None (occurrence: None)
  Receive Date: 20111114
  Receipt Date: 20111114
  Transmission Date: 20120403
  Serious: Yes (Death, Life-Threatening, Hospitalization)
  Sender: FDA-Public Use
  Company Number: None

PATIENT
  Sex: Male
  Weight: 86.2 kg

DRUGS (30)
  1. TORADOL [Concomitant]
  2. LOSARTAN [Concomitant]
  3. PROPOFOL [Concomitant]
  4. VALIUM [Concomitant]
  5. ALLOPURINOL [Concomitant]
  6. OXYCODONE HCL AND ACETAMINOPHEN [Concomitant]
  7. NEOSTIMINE [Concomitant]
  8. LABETALOL HCL [Concomitant]
  9. ATENOLOL [Concomitant]
  10. ANCEF [Concomitant]
  11. SIMVASTATIN [Concomitant]
  12. NS [Concomitant]
     Route: 042
  13. RECOTHROM [Concomitant]
  14. LIDOCAINE W/EPI [Concomitant]
  15. MIDAZOLAM [Concomitant]
  16. ROCURONIUM BROMIDE [Concomitant]
  17. ROBINUL [Concomitant]
  18. FORANE [Concomitant]
  19. O2 [Concomitant]
  20. ENALAPRIL MALEATE [Suspect]
     Indication: BLOOD PRESSURE DECREASED
     Dosage: 2.5 MG
     Route: 040
  21. PANTOPRAZOLE [Concomitant]
  22. DIAZEPAM [Concomitant]
     Route: 048
  23. BACITRACIN [Concomitant]
  24. FENTANYL [Concomitant]
  25. ZOFRAN [Concomitant]
  26. TORADOL [Concomitant]
  27. DOCUSATE [Concomitant]
  28. SUCCINYLCHOLINE CHLORIDE [Concomitant]
  29. N2O [Concomitant]
  30. MORPHINE [Concomitant]

REACTIONS (5)
  - CARDIO-RESPIRATORY ARREST [None]
  - ANGIOEDEMA [None]
  - BRAIN DEATH [None]
  - SPINAL OSTEOARTHRITIS [None]
  - HYPOXIC-ISCHAEMIC ENCEPHALOPATHY [None]
